FAERS Safety Report 24462194 (Version 1)
Quarter: 2024Q4

REPORT INFORMATION
  Report Type: Report from Study
  Country: CN (occurrence: CN)
  Receive Date: 20241018
  Receipt Date: 20241018
  Transmission Date: 20250115
  Serious: No
  Sender: ROCHE
  Company Number: CN-ROCHE-3578717

PATIENT

DRUGS (1)
  1. RITUXIMAB [Suspect]
     Active Substance: RITUXIMAB
     Indication: Glomerulonephritis membranous
     Dosage: TWO DOSES, ONE MONTH APART.
     Route: 065

REACTIONS (6)
  - Asthenia [Unknown]
  - Pyrexia [Unknown]
  - Rash [Unknown]
  - Skin infection [Unknown]
  - Hepatic enzyme abnormal [Unknown]
  - Pneumonia [Unknown]
